FAERS Safety Report 20144751 (Version 2)
Quarter: 2021Q4

REPORT INFORMATION
  Report Type: Report from Study
  Country: None (occurrence: AT)
  Receive Date: 20211203
  Receipt Date: 20211229
  Transmission Date: 20220304
  Serious: Yes (Death, Other)
  Sender: FDA-Public Use
  Company Number: AT-AKCEA THERAPEUTICS, INC.-2021IS001917

PATIENT
  Age: 65 Year
  Sex: Male
  Weight: 111.27 kg

DRUGS (2)
  1. TEGSEDI [Suspect]
     Active Substance: INOTERSEN SODIUM
     Indication: Hereditary neuropathic amyloidosis
     Route: 058
     Dates: start: 20201126
  2. DEVICE [Suspect]
     Active Substance: DEVICE

REACTIONS (6)
  - Sepsis [Fatal]
  - Erysipelas [Unknown]
  - General physical health deterioration [Unknown]
  - Disturbance in attention [Unknown]
  - Hypotension [Unknown]
  - Tachycardia [Unknown]
